FAERS Safety Report 12185756 (Version 1)
Quarter: 2016Q1

REPORT INFORMATION
  Report Type: Spontaneous
  Country: GR (occurrence: GR)
  Receive Date: 20160316
  Receipt Date: 20160316
  Transmission Date: 20160526
  Serious: Yes (Hospitalization, Other)
  Sender: FDA-Public Use
  Company Number: GR-CIPLA LTD.-2016GR02336

PATIENT

DRUGS (3)
  1. OXCARBAZEPINE. [Suspect]
     Active Substance: OXCARBAZEPINE
     Dosage: UNK
     Route: 065
  2. OLANZAPINE. [Suspect]
     Active Substance: OLANZAPINE
     Indication: BIPOLAR DISORDER
     Dosage: UNK
     Route: 065
  3. LAMOTRIGINE. [Suspect]
     Active Substance: LAMOTRIGINE
     Indication: BIPOLAR DISORDER
     Dosage: 6 G, 30 TABLETS OF 200 MG
     Route: 048

REACTIONS (6)
  - Suicide attempt [Unknown]
  - Major depression [Unknown]
  - Suicidal ideation [Unknown]
  - Intentional overdose [Unknown]
  - Treatment noncompliance [Unknown]
  - Rhabdomyolysis [Recovered/Resolved]
